FAERS Safety Report 5335797-X (Version None)
Quarter: 2007Q2

REPORT INFORMATION
  Report Type: 
  Country: None (occurrence: None)
  Receive Date: 20070322
  Receipt Date: 20061106
  Transmission Date: 20071010
  Serious: No
  Sender: FDA-Public Use
  Company Number: US-CVT-062333

PATIENT
  Age: 58 Year
  Sex: Male
  Weight: 79.4 kg

DRUGS (17)
  1. RANEXA [Suspect]
     Indication: ANGINA PECTORIS
     Dosage: SEE IMAGE
     Route: 048
     Dates: start: 20060711, end: 20061026
  2. RANEXA [Suspect]
     Indication: ANGINA PECTORIS
     Dosage: SEE IMAGE
     Route: 048
     Dates: start: 20061027, end: 20061103
  3. RANEXA [Suspect]
     Indication: ANGINA PECTORIS
     Dosage: SEE IMAGE
     Route: 048
     Dates: start: 20061106
  4. RANEXA [Suspect]
     Indication: ANGINA PECTORIS
     Dosage: SEE IMAGE
     Route: 048
     Dates: start: 20061106
  5. LORTAB /00607101/ (HYDRCODONE BITARTRATE, PARACETAMIL) [Concomitant]
  6. AMITRIPTYLINE HYDROCHLORIDE [Concomitant]
  7. ASPIRIN [Concomitant]
  8. ATENOLOL [Concomitant]
  9. CARDIZEM CD [Concomitant]
  10. PLAVIX [Concomitant]
  11. GLYBURIDE [Concomitant]
  12. LISINOPRIL /00894001/ (LISINOPRIL) [Concomitant]
  13. PREVACID [Concomitant]
  14. ZETIA [Concomitant]
  15. COUMADIN [Concomitant]
  16. ETODOLAC [Concomitant]
  17. IMDUR [Concomitant]

REACTIONS (2)
  - BILIRUBINURIA [None]
  - CHROMATURIA [None]
